FAERS Safety Report 24569546 (Version 2)
Quarter: 2024Q4

REPORT INFORMATION
  Report Type: Spontaneous
  Country: US (occurrence: US)
  Receive Date: 20241031
  Receipt Date: 20241031
  Transmission Date: 20250114
  Serious: Yes (Other)
  Sender: AMGEN
  Company Number: US-AMGEN-USASP2024215345

PATIENT

DRUGS (4)
  1. TEPROTUMUMAB [Suspect]
     Active Substance: TEPROTUMUMAB
     Indication: Endocrine ophthalmopathy
     Dosage: 10 MILLIGRAM/KILOGRAM, AT WEEK 0
     Route: 040
  2. TEPROTUMUMAB [Suspect]
     Active Substance: TEPROTUMUMAB
     Dosage: 20 MILLIGRAM/KILOGRAM, Q3WK
     Route: 040
  3. RITUXIMAB [Suspect]
     Active Substance: RITUXIMAB
     Indication: Endocrine ophthalmopathy
     Dosage: UNK
     Route: 065
  4. RITUXIMAB [Suspect]
     Active Substance: RITUXIMAB
     Indication: Off label use

REACTIONS (13)
  - Endocrine ophthalmopathy [Unknown]
  - Deafness [Unknown]
  - Muscle spasms [Unknown]
  - Alopecia [Unknown]
  - Fatigue [Unknown]
  - Diarrhoea [Unknown]
  - Hyperglycaemia [Unknown]
  - Menstruation irregular [Unknown]
  - Autophony [Unknown]
  - Ear discomfort [Unknown]
  - Tinnitus [Unknown]
  - Drug ineffective for unapproved indication [Unknown]
  - Off label use [Unknown]
